FAERS Safety Report 17747033 (Version 2)
Quarter: 2021Q1

REPORT INFORMATION
  Report Type: Spontaneous
  Country: US (occurrence: US)
  Receive Date: 20200505
  Receipt Date: 20210120
  Transmission Date: 20210419
  Serious: Yes (Other)
  Sender: FDA-Public Use
  Company Number: US-PFIZER INC-2020175156

PATIENT

DRUGS (5)
  1. CARBOPLATIN. [Suspect]
     Active Substance: CARBOPLATIN
     Indication: SQUAMOUS CELL CARCINOMA OF THE CERVIX
     Dosage: UNK, EVERY 3 WEEKS (AREA UNDER CURVE) 6 MG/ML PER MINUTE, TOTAL 4 CYCLES)
     Route: 064
  2. PACLITAXEL. [Suspect]
     Active Substance: PACLITAXEL
     Indication: SQUAMOUS CELL CARCINOMA OF THE CERVIX
     Dosage: 175 MG/M2, EVERY 3 WEEKS (TOTAL 4 CYCLES)
     Route: 064
  3. LABETALOL HYDROCHLORIDE. [Suspect]
     Active Substance: LABETALOL HYDROCHLORIDE
     Indication: HYPERTENSION
     Dosage: 200 MG, 2X/DAY
     Route: 064
  4. METFORMIN [Suspect]
     Active Substance: METFORMIN HYDROCHLORIDE
     Indication: GESTATIONAL DIABETES
     Dosage: 500 MG, 2X/DAY
     Route: 064
  5. NIFEDIPINE. [Suspect]
     Active Substance: NIFEDIPINE
     Indication: HYPERTENSION
     Dosage: 60 MG, DAILY
     Route: 064

REACTIONS (2)
  - Maternal exposure during pregnancy [Unknown]
  - Premature baby [Unknown]
